FAERS Safety Report 23617674 (Version 1)
Quarter: 2024Q1

REPORT INFORMATION
  Report Type: Spontaneous
  Country: SE (occurrence: SE)
  Receive Date: 20240311
  Receipt Date: 20240311
  Transmission Date: 20240410
  Serious: Yes (Other)
  Sender: FDA-Public Use
  Company Number: None

PATIENT
  Age: 22 Year
  Sex: Male
  Weight: 90 kg

DRUGS (5)
  1. ISOTRETINOIN [Suspect]
     Active Substance: ISOTRETINOIN
     Indication: Acne
     Dosage: 2 CAPSULES ONCE DAILY FOR 3 MONTHS THEN 3 CAPSULES ONCE DAILY, ISOTRETINOIN ACTAVIS
     Route: 048
     Dates: start: 20220513, end: 20221221
  2. PHENYLPROPANOLAMINE [Concomitant]
     Active Substance: PHENYLPROPANOLAMINE
     Indication: Product used for unknown indication
     Route: 065
     Dates: start: 20221219
  3. PHENYLPROPANOLAMINE [Concomitant]
     Active Substance: PHENYLPROPANOLAMINE
     Indication: Product used for unknown indication
     Route: 065
     Dates: start: 20221219
  4. TERRACORTRIL MED POLYMYXIN B [Concomitant]
     Indication: Product used for unknown indication
     Route: 065
     Dates: start: 20221215
  5. Mometason ABECE [Concomitant]
     Indication: Product used for unknown indication
     Route: 065
     Dates: start: 20221219

REACTIONS (2)
  - Tinnitus [Recovered/Resolved]
  - Ear discomfort [Recovered/Resolved]

NARRATIVE: CASE EVENT DATE: 20221215
